FAERS Safety Report 6180892-9 (Version None)
Quarter: 2009Q2

REPORT INFORMATION
  Report Type: 
  Country: None (occurrence: None)
  Receive Date: 20090506
  Receipt Date: 20090430
  Transmission Date: 20091009
  Serious: Yes (Other)
  Sender: FDA-Public Use
  Company Number: US-BAYER-200919818GPV

PATIENT
  Age: 76 Year
  Sex: Male

DRUGS (2)
  1. SORAFENIB [Suspect]
     Indication: METASTATIC NEOPLASM
     Dosage: TOTAL DAILY DOSE: 800 MG
     Route: 048
     Dates: start: 20081021, end: 20090421
  2. AMG 386 OR PLACEBO [Suspect]
     Indication: METASTATIC NEOPLASM
     Route: 042
     Dates: start: 20081021, end: 20090421

REACTIONS (1)
  - RETINAL ARTERY THROMBOSIS [None]
